FAERS Safety Report 20940105 (Version 1)
Quarter: 2022Q2

REPORT INFORMATION
  Report Type: Spontaneous
  Country: CA (occurrence: CA)
  Receive Date: 20220609
  Receipt Date: 20220609
  Transmission Date: 20220721
  Serious: Yes (Other)
  Sender: FDA-Public Use
  Company Number: CA-PFIZER INC-202200532093

PATIENT
  Age: 64 Year
  Sex: Female

DRUGS (9)
  1. METHOTREXATE SODIUM [Suspect]
     Active Substance: METHOTREXATE SODIUM
     Dosage: 25 MG, WEEKLY
     Route: 048
     Dates: start: 2017
  2. HYDROXYCHLOROQUINE [Concomitant]
     Active Substance: HYDROXYCHLOROQUINE
     Dosage: 300 MG, DAILY
     Route: 048
     Dates: start: 2017
  3. FOLIC ACID [Concomitant]
     Active Substance: FOLIC ACID
     Dosage: UNK
  4. LEFLUNOMIDE [Concomitant]
     Active Substance: LEFLUNOMIDE
     Dosage: UNK
  5. LEFLUNOMIDE [Concomitant]
     Active Substance: LEFLUNOMIDE
     Dosage: 20 MG, DAILY
     Route: 048
     Dates: start: 2017
  6. OXAZEPAM [Concomitant]
     Active Substance: OXAZEPAM
     Dosage: UNK
  7. PREGABALIN [Concomitant]
     Active Substance: PREGABALIN
     Dosage: UNK
  8. RISEDRONATE SODIUM [Concomitant]
     Active Substance: RISEDRONATE SODIUM
     Dosage: UNK
  9. SULFASALAZINE [Concomitant]
     Active Substance: SULFASALAZINE
     Dosage: 1500 MG, 2X/DAY
     Route: 048
     Dates: start: 2017

REACTIONS (6)
  - C-reactive protein increased [Not Recovered/Not Resolved]
  - Drug ineffective [Unknown]
  - Arthralgia [Unknown]
  - Peripheral swelling [Not Recovered/Not Resolved]
  - Hand deformity [Unknown]
  - Loss of personal independence in daily activities [Unknown]

NARRATIVE: CASE EVENT DATE: 20220603
